FAERS Safety Report 10128593 (Version 1)
Quarter: 2014Q2

REPORT INFORMATION
  Report Type: Spontaneous
  Country: US (occurrence: US)
  Receive Date: 20140428
  Receipt Date: 20140428
  Transmission Date: 20141212
  Serious: Yes (Other)
  Sender: FDA-Public Use
  Company Number: US-ELI_LILLY_AND_COMPANY-US201404006650

PATIENT
  Age: 78 Year
  Sex: Male

DRUGS (5)
  1. CIALIS [Suspect]
     Indication: ERECTILE DYSFUNCTION
     Dosage: 10 MG, UNK
     Route: 065
  2. CIALIS [Suspect]
     Dosage: 20 MG, UNK
     Route: 065
  3. RAMIPRIL [Concomitant]
  4. METOPROLOL [Concomitant]
  5. DIGOXIN [Concomitant]

REACTIONS (2)
  - Prostate cancer [Unknown]
  - Drug ineffective [Unknown]
